FAERS Safety Report 8134124-2 (Version None)
Quarter: 2012Q1

REPORT INFORMATION
  Report Type: 
  Country: None (occurrence: None)
  Receive Date: 20120214
  Receipt Date: 20120202
  Transmission Date: 20120608
  Serious: Yes (Life-Threatening, Hospitalization)
  Sender: FDA-Public Use
  Company Number: GB-RANBAXY-2012R1-52480

PATIENT
  Age: 33 Year
  Sex: Female

DRUGS (1)
  1. AMOXICILLIN AND CLAVULANATE POTASSIUM [Suspect]
     Indication: ANTIBIOTIC PROPHYLAXIS
     Dosage: UNK
     Route: 042
     Dates: start: 20120124, end: 20120124

REACTIONS (1)
  - ANAPHYLACTIC REACTION [None]
